FAERS Safety Report 9791562 (Version 1)
Quarter: 2014Q1

REPORT INFORMATION
  Report Type: Spontaneous
  Country: NL (occurrence: NL)
  Receive Date: 20140101
  Receipt Date: 20140101
  Transmission Date: 20141002
  Serious: Yes (Other)
  Sender: FDA-Public Use
  Company Number: PHHY2013NL152105

PATIENT
  Sex: 0

DRUGS (2)
  1. DIAZEPAM SANDOZ [Suspect]
     Dosage: 1.25 TABLET OF THE 10 MG
  2. TEMAZEPAM [Concomitant]
     Dosage: 4 X 10 MG PER MONTH

REACTIONS (10)
  - Mood swings [Unknown]
  - Elevated mood [Unknown]
  - Inappropriate affect [Unknown]
  - Anxiety [Unknown]
  - Flight of ideas [Unknown]
  - Agitation [Unknown]
  - Psychomotor hyperactivity [Unknown]
  - Abnormal behaviour [Unknown]
  - Impulsive behaviour [Unknown]
  - Suspiciousness [Unknown]
